FAERS Safety Report 8852077 (Version 1)
Quarter: 2012Q4

REPORT INFORMATION
  Report Type: Spontaneous
  Country: US (occurrence: None)
  Receive Date: 20121022
  Receipt Date: 20121022
  Transmission Date: 20130627
  Serious: No
  Sender: FDA-Public Use
  Company Number: None

PATIENT
  Age: 76 Year
  Sex: Female

DRUGS (1)
  1. TRIAMCINOLONE [Suspect]
     Indication: BACK PAIN
     Route: 008
     Dates: start: 20120625, end: 20120625

REACTIONS (7)
  - Chest pain [None]
  - Cardiac stress test abnormal [None]
  - Nausea [None]
  - Vomiting [None]
  - Gastrointestinal ulcer [None]
  - Photophobia [None]
  - Fatigue [None]
